FAERS Safety Report 10919949 (Version 1)
Quarter: 2015Q1

REPORT INFORMATION
  Report Type: Spontaneous
  Country: US (occurrence: US)
  Receive Date: 20150317
  Receipt Date: 20150317
  Transmission Date: 20150721
  Serious: No
  Sender: FDA-Public Use
  Company Number: US-AMGEN-USASP2015022919

PATIENT

DRUGS (1)
  1. ENBREL [Suspect]
     Active Substance: ETANERCEPT
     Indication: PRODUCT USED FOR UNKNOWN INDICATION
     Dosage: UNK
     Route: 065

REACTIONS (7)
  - Mass [Unknown]
  - Rash papular [Unknown]
  - Contusion [Unknown]
  - Injection site bruising [Unknown]
  - Pruritus [Unknown]
  - Erythema [Unknown]
  - Dizziness [Unknown]
